FAERS Safety Report 6322533-3 (Version None)
Quarter: 2009Q3

REPORT INFORMATION
  Report Type: 
  Country: None (occurrence: None)
  Receive Date: 20090824
  Receipt Date: 20090811
  Transmission Date: 20100115
  Serious: Yes (Other)
  Sender: FDA-Public Use
  Company Number: US-PFIZER INC-2009255025

PATIENT
  Sex: Male

DRUGS (1)
  1. CHANTIX [Suspect]

REACTIONS (8)
  - GENERALISED ANXIETY DISORDER [None]
  - HIP ARTHROPLASTY [None]
  - HYPOACUSIS [None]
  - INCREASED TENDENCY TO BRUISE [None]
  - MUSCLE SPASMS [None]
  - PANIC DISORDER [None]
  - POST-TRAUMATIC STRESS DISORDER [None]
  - WITHDRAWAL SYNDROME [None]
